FAERS Safety Report 9536717 (Version 1)
Quarter: 2013Q3

REPORT INFORMATION
  Report Type: Spontaneous
  Country: US (occurrence: None)
  Receive Date: 20130918
  Receipt Date: 20130918
  Transmission Date: 20140515
  Serious: Yes (Hospitalization)
  Sender: FDA-Public Use
  Company Number: None

PATIENT
  Age: 77 Year
  Sex: Male
  Weight: 118.5 kg

DRUGS (2)
  1. AZITHROMYCIN [Suspect]
     Indication: BRONCHITIS
     Route: 048
     Dates: start: 20130628, end: 20130702
  2. CEPHALEXIN [Suspect]
     Indication: BRONCHITIS
     Route: 048
     Dates: start: 20130628, end: 20130702

REACTIONS (2)
  - Haemoptysis [None]
  - International normalised ratio increased [None]
